FAERS Safety Report 13877864 (Version 3)
Quarter: 2018Q1

REPORT INFORMATION
  Report Type: Report from Study
  Country: CZ (occurrence: CZ)
  Receive Date: 20170817
  Receipt Date: 20180220
  Transmission Date: 20180508
  Serious: Yes (Death)
  Sender: FDA-Public Use
  Company Number: CZ-PFIZER INC-2017349745

PATIENT
  Age: 55 Year
  Sex: Male

DRUGS (2)
  1. MEROPENEM. [Suspect]
     Active Substance: MEROPENEM
     Dosage: UNK
  2. AMIKACIN [Suspect]
     Active Substance: AMIKACIN
     Indication: NEUTROPENIA
     Dosage: UNK

REACTIONS (1)
  - Drug ineffective [Fatal]
